FAERS Safety Report 6982507-6 (Version None)
Quarter: 2010Q3

REPORT INFORMATION
  Report Type: 
  Country: None (occurrence: None)
  Receive Date: 20100914
  Receipt Date: 20100126
  Transmission Date: 20110219
  Serious: No
  Sender: FDA-Public Use
  Company Number: US-PFIZER INC-2010011625

PATIENT
  Sex: Female
  Weight: 83.914 kg

DRUGS (4)
  1. LYRICA [Suspect]
     Indication: FIBROMYALGIA
     Dates: start: 20100101, end: 20100101
  2. LYRICA [Suspect]
     Indication: LYME DISEASE
  3. UNITHROID [Concomitant]
     Dosage: UNK
  4. HUMAN GROWTH HORMONE, RECOMBINANT [Concomitant]
     Dosage: UNK

REACTIONS (1)
  - HEADACHE [None]
